FAERS Safety Report 9239033 (Version 2)
Quarter: 2013Q2

REPORT INFORMATION
  Report Type: Spontaneous
  Country: IT (occurrence: IT)
  Receive Date: 20130418
  Receipt Date: 20130429
  Transmission Date: 20140414
  Serious: Yes (Other)
  Sender: FDA-Public Use
  Company Number: IT-PFIZER INC-2013121043

PATIENT
  Age: 78 Year
  Sex: Male

DRUGS (9)
  1. CORDARONE [Suspect]
     Dosage: 200 MG, UNK
     Route: 048
     Dates: start: 20130101
  2. COUMADIN [Interacting]
     Dosage: UNK
     Route: 048
     Dates: start: 20130101, end: 20130322
  3. ROCEFIN [Interacting]
     Dosage: UNK
     Route: 030
     Dates: start: 20130322
  4. LESCOL [Interacting]
     Dosage: 20 MG, UNK
     Route: 048
     Dates: start: 20130101
  5. ALFUZOSIN HYDROCHLORIDE [Concomitant]
     Dosage: UNK
  6. INSULIN HUMAN [Concomitant]
     Dosage: UNK
  7. ATENOL [Concomitant]
     Dosage: 100 MG, UNK
  8. BLOPRESID [Concomitant]
     Dosage: 16/12.5 MG
  9. BENTELAN [Concomitant]
     Dosage: 1.5 MG INJSOL
     Dates: start: 20130322, end: 20130326

REACTIONS (4)
  - Drug interaction [Unknown]
  - Epistaxis [Recovering/Resolving]
  - International normalised ratio increased [Recovering/Resolving]
  - Blood pressure increased [Unknown]
